FAERS Safety Report 7972278-9 (Version None)
Quarter: 2011Q4

REPORT INFORMATION
  Report Type: 
  Country: None (occurrence: None)
  Receive Date: 20111213
  Receipt Date: 20111129
  Transmission Date: 20120403
  Serious: Yes (Hospitalization)
  Sender: FDA-Public Use
  Company Number: US-BIOGENIDEC-2011BI044753

PATIENT
  Age: 63 Year
  Sex: Female
  Weight: 101 kg

DRUGS (14)
  1. MESALAMINE [Concomitant]
     Indication: CROHN'S DISEASE
     Route: 048
     Dates: start: 20000101
  2. HYDROCHLOROTHIAZIDE [Concomitant]
     Indication: HYPERTENSION
     Route: 048
     Dates: start: 20110101
  3. ZYRTEC [Concomitant]
     Indication: SEASONAL ALLERGY
     Route: 048
     Dates: start: 20080101
  4. TYSABRI [Suspect]
     Indication: CROHN'S DISEASE
     Route: 042
     Dates: start: 20081028
  5. VITAMIN B COMPLEX CAP [Concomitant]
     Indication: MEDICAL DIET
     Route: 048
     Dates: start: 20070101
  6. KLONOPIN [Concomitant]
     Indication: INSOMNIA
     Route: 048
     Dates: start: 20100101
  7. FOLIC ACID [Concomitant]
     Indication: MEDICAL DIET
     Route: 048
     Dates: start: 20080101
  8. METOPROLOL TARTRATE [Concomitant]
     Indication: HYPERTENSION
     Route: 048
     Dates: start: 20070101
  9. VITAMIN E [Concomitant]
     Indication: MEDICAL DIET
     Route: 048
     Dates: start: 20020101
  10. FLONASE [Concomitant]
     Indication: SEASONAL ALLERGY
     Dates: start: 20040101
  11. POLY IRON [Concomitant]
     Indication: ANAEMIA
     Route: 048
     Dates: start: 20111028
  12. PROTONIX [Concomitant]
     Indication: GASTROOESOPHAGEAL REFLUX DISEASE
     Route: 048
     Dates: start: 20010101
  13. SOMA [Concomitant]
     Indication: MUSCLE RELAXANT THERAPY
     Route: 048
     Dates: start: 19990101
  14. GRAPE SEED [Concomitant]
     Indication: MEDICAL DIET
     Route: 048
     Dates: start: 20020101

REACTIONS (1)
  - OSTEOARTHRITIS [None]
